FAERS Safety Report 22246120 (Version 3)
Quarter: 2024Q1

REPORT INFORMATION
  Report Type: Spontaneous
  Country: US (occurrence: US)
  Receive Date: 20230424
  Receipt Date: 20240118
  Transmission Date: 20240410
  Serious: Yes (Other)
  Sender: FDA-Public Use
  Company Number: US-BRISTOL-MYERS SQUIBB COMPANY-2023-057467

PATIENT
  Age: 65 Year
  Sex: Female
  Weight: 101.97 kg

DRUGS (2)
  1. REVLIMID [Suspect]
     Active Substance: LENALIDOMIDE
     Indication: Plasma cell myeloma in remission
     Dosage: FREQUENCY: DAILY ON DAYS 1-21 OF 28 DAY CYCLE
     Route: 048
     Dates: start: 20190801
  2. REVLIMID [Suspect]
     Active Substance: LENALIDOMIDE
     Indication: Plasma cell myeloma
     Route: 048
     Dates: start: 20211001

REACTIONS (3)
  - Diarrhoea [Recovered/Resolved]
  - Neuropathy peripheral [Not Recovered/Not Resolved]
  - Influenza [Recovered/Resolved]

NARRATIVE: CASE EVENT DATE: 20240109
